FAERS Safety Report 10191640 (Version 3)
Quarter: 2014Q2

REPORT INFORMATION
  Report Type: Spontaneous
  Country: US (occurrence: US)
  Receive Date: 20140523
  Receipt Date: 20140611
  Transmission Date: 20141212
  Serious: Yes (Other)
  Sender: FDA-Public Use
  Company Number: US-MYLANLABS-2014S1011643

PATIENT
  Age: 63 Year
  Sex: Female
  Weight: 111.13 kg

DRUGS (9)
  1. CANDESARTAN CILEXETIL AND HYDROCHLOROTHIAZIDE TABLETS [Suspect]
     Indication: BLOOD PRESSURE INCREASED
     Route: 048
     Dates: start: 20130215, end: 201302
  2. CANDESARTAN CILEXETIL AND HYDROCHLOROTHIAZIDE TABLETS [Suspect]
     Indication: BLOOD PRESSURE INCREASED
     Route: 048
     Dates: start: 201312, end: 2013
  3. VALIUM [Concomitant]
  4. NITROGLYCERIN [Concomitant]
  5. TOPROL [Concomitant]
     Indication: BLOOD PRESSURE INCREASED
     Dosage: XL
     Route: 048
  6. ARMOUR THYROID [Concomitant]
  7. KLOR CON [Concomitant]
  8. OMEGA 3 /00931501/ [Concomitant]
  9. FLAX OIL /01649403/ [Concomitant]

REACTIONS (7)
  - Drug ineffective [Recovered/Resolved]
  - Blood pressure increased [Recovered/Resolved]
  - Transient ischaemic attack [Recovered/Resolved]
  - Feeling abnormal [Recovered/Resolved]
  - Palpitations [Recovered/Resolved]
  - Dizziness [Recovered/Resolved]
  - Headache [Recovered/Resolved]
